FAERS Safety Report 4902295-4 (Version None)
Quarter: 2006Q1

REPORT INFORMATION
  Report Type: 
  Country: None (occurrence: None)
  Receive Date: 20060202
  Receipt Date: 20060119
  Transmission Date: 20060701
  Serious: Yes (Hospitalization)
  Sender: FDA-Public Use
  Company Number: 2006-DE-00316GD

PATIENT
  Age: 76 Year
  Sex: Female

DRUGS (1)
  1. PROPRANOLOL [Suspect]

REACTIONS (4)
  - CARDIOGENIC SHOCK [None]
  - COMA [None]
  - CYANOSIS [None]
  - DRUG TOXICITY [None]
